FAERS Safety Report 4742377-3 (Version None)
Quarter: 2005Q3

REPORT INFORMATION
  Report Type: 
  Country: None (occurrence: None)
  Receive Date: 20050808
  Receipt Date: 20050727
  Transmission Date: 20060218
  Serious: Yes (Hospitalization)
  Sender: FDA-Public Use
  Company Number: USA041184257

PATIENT
  Age: 79 Year
  Sex: Female
  Weight: 57 kg

DRUGS (3)
  1. FORTEO [Suspect]
     Indication: OSTEOPOROSIS
     Dosage: 20 UG DAY
     Dates: start: 20040501
  2. DARVOCET [Concomitant]
  3. ACTONEL [Concomitant]

REACTIONS (12)
  - ASTHENIA [None]
  - BLOOD DISORDER [None]
  - CAUDA EQUINA SYNDROME [None]
  - DIFFICULTY IN WALKING [None]
  - DYSSTASIA [None]
  - FEAR [None]
  - FEELING ABNORMAL [None]
  - PAIN IN EXTREMITY [None]
  - PHARMACEUTICAL PRODUCT COMPLAINT [None]
  - SPINAL CORD COMPRESSION [None]
  - SPINAL OSTEOARTHRITIS [None]
  - THORACIC VERTEBRAL FRACTURE [None]
